FAERS Safety Report 16665385 (Version 6)
Quarter: 2020Q3

REPORT INFORMATION
  Report Type: Spontaneous
  Country: AT (occurrence: AT)
  Receive Date: 20190803
  Receipt Date: 20200211
  Transmission Date: 20201105
  Serious: Yes (Death, Life-Threatening, Hospitalization, Other)
  Sender: FDA-Public Use
  Company Number: AT-VALIDUS PHARMACEUTICALS LLC-AT-2019VAL000327

PATIENT

DRUGS (19)
  1. TESTOVIRON                         /00103102/ [Suspect]
     Active Substance: TESTOSTERONE PROPIONATE
     Indication: INTENTIONAL PRODUCT MISUSE
     Dosage: 250 MG, UNK
     Route: 065
  2. AN 1 [Concomitant]
     Indication: PRODUCT USED FOR UNKNOWN INDICATION
     Dosage: UNK
  3. SOMATROPINE [Suspect]
     Active Substance: SOMATROPIN
     Indication: INTENTIONAL PRODUCT MISUSE
     Dosage: 16?24 IU
     Route: 065
  4. CAPTAGON [Suspect]
     Active Substance: FENETHYLLINE HYDROCHLORIDE
     Indication: INTENTIONAL PRODUCT MISUSE
     Dosage: UNK
     Route: 065
  5. HALOTESTIN [Suspect]
     Active Substance: FLUOXYMESTERONE
     Indication: INTENTIONAL PRODUCT MISUSE
     Dosage: 30 ? 40 TABLETS
     Route: 065
  6. ALDACTONE [Suspect]
     Active Substance: SPIRONOLACTONE
     Indication: INTENTIONAL PRODUCT MISUSE
     Dosage: UNK
     Route: 065
  7. DIAZEPAM. [Suspect]
     Active Substance: DIAZEPAM
     Indication: INTENTIONAL PRODUCT MISUSE
     Dosage: UNK
     Route: 065
  8. ACETYLSALICYLIC ACID [Suspect]
     Active Substance: ASPIRIN
     Indication: INTENTIONAL PRODUCT MISUSE
     Dosage: UNK
     Route: 065
  9. INSULIN [Suspect]
     Active Substance: INSULIN NOS
     Indication: INTENTIONAL PRODUCT MISUSE
     Dosage: 20 IU, UNK
     Route: 065
  10. CLENBUTEROL [Suspect]
     Active Substance: CLENBUTEROL
     Indication: INTENTIONAL PRODUCT MISUSE
     Dosage: UNK
     Route: 065
  11. SPIRONOLACTONE. [Suspect]
     Active Substance: SPIRONOLACTONE
     Indication: INTENTIONAL PRODUCT MISUSE
     Dosage: UNK
     Route: 065
  12. METHANDIENONE [Suspect]
     Active Substance: METHANDROSTENOLONE
     Indication: INTENTIONAL PRODUCT MISUSE
     Dosage: UNK
     Route: 065
  13. VALIUM [Suspect]
     Active Substance: DIAZEPAM
     Indication: INTENTIONAL PRODUCT MISUSE
     Dosage: UNK
     Route: 065
  14. WINSTROL [Suspect]
     Active Substance: STANOZOLOL
     Indication: INTENTIONAL PRODUCT MISUSE
     Dosage: 2 DF, UNK 2 INJECTION
     Route: 065
  15. LASIX [Suspect]
     Active Substance: FUROSEMIDE
     Indication: INTENTIONAL PRODUCT MISUSE
     Dosage: UNK
     Route: 065
  16. EPHEDRINE. [Suspect]
     Active Substance: EPHEDRINE
     Indication: INTENTIONAL PRODUCT MISUSE
     Dosage: UNK
     Route: 065
  17. STROMBA [Suspect]
     Active Substance: STANOZOLOL
     Indication: INTENTIONAL PRODUCT MISUSE
     Dosage: 80 DF, QD, 80 UG/LITRE, UNK, 2 INJECTIONS / 50 ? 80 TABLETS
     Route: 065
  18. PARABOLAN [Suspect]
     Active Substance: TRENBOLONE
     Indication: INTENTIONAL PRODUCT MISUSE
     Dosage: 2 INJECTIONS
     Route: 065
  19. MASTERON [Suspect]
     Active Substance: DROMOSTANOLONE PROPIONATE
     Indication: INTENTIONAL PRODUCT MISUSE
     Dosage: 2 DF, QD 2 INJECTION
     Route: 065

REACTIONS (6)
  - Hepatic neoplasm [Fatal]
  - Poisoning [Fatal]
  - Drug abuse [Fatal]
  - Multiple organ dysfunction syndrome [Fatal]
  - Intra-abdominal haemorrhage [Fatal]
  - Intentional product misuse [Fatal]

NARRATIVE: CASE EVENT DATE: 19960314
